FAERS Safety Report 24453723 (Version 2)
Quarter: 2024Q4

REPORT INFORMATION
  Report Type: Report from Study
  Country: US (occurrence: US)
  Receive Date: 20241017
  Receipt Date: 20241018
  Transmission Date: 20250115
  Serious: No
  Sender: ROCHE
  Company Number: US-ROCHE-3327306

PATIENT
  Age: 58 Year
  Sex: Female

DRUGS (10)
  1. RITUXAN [Suspect]
     Active Substance: RITUXIMAB
     Indication: Pemphigoid
     Dosage: DATE OF SERVICE:06/APR/2023, 27/JUL/2023, 13/JUL/2023,15/JUN/2023, 01/JUN/2023, 04/MAY/2023, 27/APR/
     Route: 041
  2. RITUXAN [Suspect]
     Active Substance: RITUXIMAB
     Indication: Dry eye
     Route: 041
  3. RITUXAN [Suspect]
     Active Substance: RITUXIMAB
     Indication: Entropion
     Dosage: 100 MG SINGLE-USE VIAL
     Route: 041
     Dates: start: 20221018, end: 20231018
  4. CELLCEPT [Suspect]
     Active Substance: MYCOPHENOLATE MOFETIL
     Indication: Product used for unknown indication
     Route: 065
  5. IMURAN [Concomitant]
     Active Substance: AZATHIOPRINE
  6. NEORAL [Concomitant]
     Active Substance: CYCLOSPORINE
  7. TRAMADOL [Concomitant]
     Active Substance: TRAMADOL
  8. SYNTHROID [Concomitant]
     Active Substance: LEVOTHYROXINE SODIUM
  9. RESTASIS [Concomitant]
     Active Substance: CYCLOSPORINE
  10. OLMESARTAN [Concomitant]
     Active Substance: OLMESARTAN

REACTIONS (2)
  - Off label use [Unknown]
  - No adverse event [Unknown]
